FAERS Safety Report 4478029-7 (Version None)
Quarter: 2004Q3

REPORT INFORMATION
  Report Type: 
  Country: None (occurrence: None)
  Receive Date: 20040923
  Receipt Date: 20040721
  Transmission Date: 20050211
  Serious: No
  Sender: FDA-Public Use
  Company Number: USA040670089

PATIENT
  Age: 82 Year
  Sex: Female

DRUGS (4)
  1. FORTEO [Suspect]
     Indication: OSTEOPOROSIS
     Dates: start: 20031201
  2. CALCIUM [Concomitant]
  3. ASPIRIN [Concomitant]
  4. ARTIFICIAL TEARS [Concomitant]

REACTIONS (4)
  - DYSPNOEA [None]
  - EXTRAOCULAR MUSCLE PARESIS [None]
  - EYE IRRITATION [None]
  - LACRIMATION INCREASED [None]
